FAERS Safety Report 13909129 (Version 1)
Quarter: 2017Q3

REPORT INFORMATION
  Report Type: Spontaneous
  Country: US (occurrence: US)
  Receive Date: 20170828
  Receipt Date: 20170828
  Transmission Date: 20171127
  Serious: Yes (Other)
  Sender: FDA-Public Use
  Company Number: US-ORION CORPORATION ORION PHARMA-17_00002577

PATIENT
  Age: 4 Year
  Sex: Male

DRUGS (1)
  1. METHOTREXATE. [Suspect]
     Active Substance: METHOTREXATE
     Indication: NEUTROPENIA
     Route: 065

REACTIONS (5)
  - Moraxella test positive [Unknown]
  - Cough [Unknown]
  - Neutropenia [Recovering/Resolving]
  - Bronchiectasis [Unknown]
  - Streptococcus test positive [Unknown]
